FAERS Safety Report 18109048 (Version 1)
Quarter: 2020Q3

REPORT INFORMATION
  Report Type: Spontaneous
  Country: US (occurrence: US)
  Receive Date: 20200804
  Receipt Date: 20200804
  Transmission Date: 20201103
  Serious: No
  Sender: FDA-Public Use
  Company Number: US-PFIZER INC-2020252630

PATIENT
  Age: 61 Year
  Sex: Female

DRUGS (2)
  1. IBRANCE [Suspect]
     Active Substance: PALBOCICLIB
     Dosage: 75 MG, CYCLIC (21 DAYS ON 10 DAYS OFF)
     Dates: start: 20200630
  2. IBRANCE [Suspect]
     Active Substance: PALBOCICLIB
     Dosage: 75 MG, UNK
     Dates: start: 20130101

REACTIONS (5)
  - Hepatic function abnormal [Unknown]
  - Arthralgia [Unknown]
  - Spleen disorder [Unknown]
  - Tendon disorder [Unknown]
  - Gait disturbance [Unknown]
